FAERS Safety Report 11832254 (Version 2)
Quarter: 2016Q1

REPORT INFORMATION
  Report Type: Report from Study
  Country: US (occurrence: US)
  Receive Date: 20151214
  Receipt Date: 20160125
  Transmission Date: 20160525
  Serious: Yes (Hospitalization)
  Sender: FDA-Public Use
  Company Number: US-JNJFOC-20151209109

PATIENT
  Age: 50 Year
  Sex: Female
  Weight: 61 kg

DRUGS (14)
  1. ALBUTEROL. [Concomitant]
     Active Substance: ALBUTEROL
  2. FLUTICASONE W/SALMETEROL [Concomitant]
     Active Substance: FLUTICASONE PROPIONATE\SALMETEROL XINAFOATE
  3. ACYCLOVIR. [Concomitant]
     Active Substance: ACYCLOVIR
  4. LIDOCAINE/PRILOCAINE [Concomitant]
  5. METHOCARBAMOL. [Concomitant]
     Active Substance: METHOCARBAMOL
  6. MULTIVITAMINS [Concomitant]
     Active Substance: VITAMINS
  7. RITUXIMAB [Suspect]
     Active Substance: RITUXIMAB
     Indication: CHRONIC LYMPHOCYTIC LEUKAEMIA
     Dosage: 50 MG/M2 ON CYCLE 2 DAY 1, THEN 325 MG/M2 ON DAY 2, AND 500 MG/M2 FROM CYCLE 3-7
     Route: 042
     Dates: start: 20151012, end: 20151013
  8. HYDROCHLOROTHIAZIDE. [Concomitant]
     Active Substance: HYDROCHLOROTHIAZIDE
  9. OXYCODONE [Concomitant]
     Active Substance: OXYCODONE
  10. IBRUTINIB [Suspect]
     Active Substance: IBRUTINIB
     Indication: CHRONIC LYMPHOCYTIC LEUKAEMIA
     Route: 048
     Dates: start: 20150914, end: 20151108
  11. AMLODIPINE [Concomitant]
     Active Substance: AMLODIPINE BESYLATE
  12. POTASSIUM CHLORIDE. [Concomitant]
     Active Substance: POTASSIUM CHLORIDE
  13. CHOLECALCIFEROL [Concomitant]
     Active Substance: CHOLECALCIFEROL
  14. DAPSONE. [Concomitant]
     Active Substance: DAPSONE

REACTIONS (3)
  - Aspartate aminotransferase increased [Not Recovered/Not Resolved]
  - Blood bilirubin increased [Not Recovered/Not Resolved]
  - Alanine aminotransferase increased [Not Recovered/Not Resolved]

NARRATIVE: CASE EVENT DATE: 20151109
